FAERS Safety Report 8186510-2 (Version None)
Quarter: 2012Q1

REPORT INFORMATION
  Report Type: 
  Country: None (occurrence: None)
  Receive Date: 20120306
  Receipt Date: 20120227
  Transmission Date: 20120608
  Serious: Yes (Life-Threatening, Hospitalization, Other)
  Sender: FDA-Public Use
  Company Number: HR-GENZYME-RENA-1001443

PATIENT

DRUGS (2)
  1. RENAGEL [Suspect]
     Indication: RENAL FAILURE CHRONIC
  2. RENAGEL [Suspect]
     Indication: HYPERPHOSPHATAEMIA
     Dosage: 0.8 G, BID
     Route: 065
     Dates: start: 20111022, end: 20111027

REACTIONS (5)
  - GASTRODUODENITIS [None]
  - GASTRITIS [None]
  - HELICOBACTER INFECTION [None]
  - MELAENA [None]
  - GASTRIC HAEMORRHAGE [None]
